FAERS Safety Report 5009039-9 (Version None)
Quarter: 2006Q2

REPORT INFORMATION
  Report Type: 
  Country: None (occurrence: None)
  Receive Date: 20060519
  Receipt Date: 20060511
  Transmission Date: 20061013
  Serious: Yes (Hospitalization)
  Sender: FDA-Public Use
  Company Number: 230833K06USA

PATIENT
  Age: 59 Year
  Sex: Male
  Weight: 89.8 kg

DRUGS (10)
  1. REBIF [Suspect]
     Indication: MULTIPLE SCLEROSIS
     Dosage: 44 MCG, 3 IN 1 WEEKS, SUBCUTANEOUS
     Route: 058
     Dates: start: 20020816
  2. STEROID (CORTICOSTEROID NOS) [Suspect]
     Dosage: INTRAVENOUS
     Route: 042
  3. ANTIBIOTICS (ANTIBIOTICS) [Concomitant]
  4. PROVIGIL [Concomitant]
  5. AMANTADINE HCL [Concomitant]
  6. METHYLIN (METHYLPHENIDATE HYDROCHLORIDE) [Concomitant]
  7. ASCORBIC ACID [Concomitant]
  8. VITAMIN B (VITAMIN B) [Concomitant]
  9. OYBUTYNIN (OXYBUTYNIN) [Concomitant]
  10. RITALIN-SR [Concomitant]

REACTIONS (7)
  - CONDITION AGGRAVATED [None]
  - HYPERGLYCAEMIA [None]
  - HYPOAESTHESIA [None]
  - INSOMNIA [None]
  - MULTIPLE SCLEROSIS [None]
  - OSTEOARTHRITIS [None]
  - PNEUMONIA [None]
